FAERS Safety Report 8969143 (Version 1)
Quarter: 2012Q4

REPORT INFORMATION
  Report Type: 
  Country: GB (occurrence: US)
  Receive Date: 20121217
  Receipt Date: 20121217
  Transmission Date: 20130627
  Serious: Yes (Hospitalization)
  Sender: FDA-Public Use
  Company Number: US-009507513-1212USA002864

PATIENT
  Age: 57 Year
  Sex: Male
  Weight: 102.5 kg

DRUGS (11)
  1. VYTORIN [Suspect]
     Dosage: 10/40 mg, qd
     Route: 048
     Dates: start: 2003
  2. VEMURAFENIB [Suspect]
     Indication: MALIGNANT MELANOMA
     Dosage: 960 mg, bid
     Route: 048
     Dates: start: 20091216, end: 20091219
  3. VEMURAFENIB [Suspect]
     Dosage: 720 mg, bid
     Dates: start: 20100101
  4. PLAVIX [Concomitant]
     Dosage: 75 mg, UNK
     Dates: start: 199901
  5. ASPIRIN [Concomitant]
     Dosage: 81 mg, UNK
     Dates: start: 199901
  6. OXYCONTIN [Concomitant]
     Dosage: 40 mg, UNK
     Dates: start: 200907, end: 20100128
  7. PERCOCET [Concomitant]
     Dosage: 10/650 mg, qd
     Dates: start: 200909, end: 20100128
  8. LISINOPRIL [Concomitant]
     Dosage: UNK
     Dates: start: 200909
  9. TOPROL XL TABLETS [Concomitant]
     Dosage: UNK
     Dates: start: 199901
  10. ADVAIR [Concomitant]
     Dosage: 250/50 mg,qd
     Dates: start: 2000
  11. ZOLPIDEM TARTRATE [Concomitant]
     Dosage: 10 mg, qd
     Dates: start: 2008

REACTIONS (1)
  - Pancreatitis [Recovered/Resolved]
